FAERS Safety Report 11742526 (Version 6)
Quarter: 2016Q4

REPORT INFORMATION
  Report Type: Spontaneous
  Country: US (occurrence: US)
  Receive Date: 20151116
  Receipt Date: 20161221
  Transmission Date: 20170206
  Serious: No
  Sender: FDA-Public Use
  Company Number: US-ACTELION PHARMACEUTICALS US, INC.-A-US2011-57148

PATIENT
  Age: 75 Year
  Sex: Female
  Weight: 60.32 kg

DRUGS (7)
  1. ALLEGRA [Suspect]
     Active Substance: FEXOFENADINE HYDROCHLORIDE
     Indication: HYPERSENSITIVITY
     Dosage: 1 DF, QD
     Route: 065
  2. REVATIO [Concomitant]
     Active Substance: SILDENAFIL CITRATE
  3. TRACLEER [Suspect]
     Active Substance: BOSENTAN
     Dosage: UNK
     Route: 048
  4. OXYGEN. [Concomitant]
     Active Substance: OXYGEN
  5. BENADRYL [Suspect]
     Active Substance: DIPHENHYDRAMINE HYDROCHLORIDE
     Indication: HYPERSENSITIVITY
     Dosage: 2 DF, QD
     Route: 065
  6. TRACLEER [Suspect]
     Active Substance: BOSENTAN
     Indication: PULMONARY ARTERIAL HYPERTENSION
     Dosage: 125 MG, BID
     Route: 048
     Dates: start: 20100714
  7. TYVASO [Suspect]
     Active Substance: TREPROSTINIL
     Indication: PULMONARY ARTERIAL HYPERTENSION
     Dosage: 18-54 MCG, QID
     Route: 055
     Dates: start: 20111110

REACTIONS (35)
  - Tonsillar cyst [Unknown]
  - Dizziness [Unknown]
  - Cough [Unknown]
  - Headache [Unknown]
  - Chest discomfort [Unknown]
  - Oedema [Unknown]
  - Malaise [Unknown]
  - Seasonal allergy [Unknown]
  - Oral pain [Unknown]
  - Neck pain [Unknown]
  - Epistaxis [Unknown]
  - Cystitis [Unknown]
  - Condition aggravated [Unknown]
  - Pain [Unknown]
  - Nasal discomfort [Unknown]
  - Wheezing [Unknown]
  - Feeling abnormal [Unknown]
  - Hypersensitivity [Unknown]
  - Swelling [Unknown]
  - Decreased appetite [Unknown]
  - Acne [Unknown]
  - Diarrhoea [Unknown]
  - Vomiting [Unknown]
  - Sinusitis [Unknown]
  - Paranasal sinus hypersecretion [Unknown]
  - Haematochezia [Unknown]
  - Nasal congestion [Unknown]
  - Throat irritation [Unknown]
  - Contusion [Unknown]
  - Chest pain [Unknown]
  - Urinary tract infection [Not Recovered/Not Resolved]
  - Dyspnoea [Unknown]
  - Somnolence [Unknown]
  - Tooth discolouration [Unknown]
  - Pyrexia [Unknown]

NARRATIVE: CASE EVENT DATE: 201111
